FAERS Safety Report 14168646 (Version 2)
Quarter: 2018Q4

REPORT INFORMATION
  Report Type: Spontaneous
  Country: CN (occurrence: CN)
  Receive Date: 20171108
  Receipt Date: 20181025
  Transmission Date: 20190204
  Serious: No
  Sender: FDA-Public Use
  Company Number: CN-LUPIN PHARMACEUTICALS INC.-2016-04944

PATIENT
  Age: 39 Year
  Sex: Male

DRUGS (1)
  1. TOPIRAMATE. [Suspect]
     Active Substance: TOPIRAMATE
     Indication: PARTIAL SEIZURES
     Dosage: 100 MG, QD
     Route: 065

REACTIONS (8)
  - Asthenia [Recovered/Resolved]
  - Nocturia [Recovered/Resolved]
  - Anger [Recovered/Resolved]
  - Decreased appetite [Recovered/Resolved]
  - Loss of libido [Recovered/Resolved]
  - Spermatorrhoea [Recovered/Resolved]
  - Pollakiuria [Recovered/Resolved]
  - Fatigue [Recovered/Resolved]
